FAERS Safety Report 23825950 (Version 1)
Quarter: 2024Q2

REPORT INFORMATION
  Report Type: Spontaneous
  Country: US (occurrence: US)
  Receive Date: 20240507
  Receipt Date: 20240507
  Transmission Date: 20240716
  Serious: Yes (Hospitalization)
  Sender: FDA-Public Use
  Company Number: US-PROCTER_AND_GAMBLE-GS24054243

PATIENT
  Sex: Male

DRUGS (1)
  1. GILLETTE CLEAR WILD RAIN [Suspect]
     Active Substance: ALUMINUM ZIRCONIUM OCTACHLOROHYDREX GLY
     Dosage: ONE SWIPE, 1 TIME A DAY, AFTER A MORNING SHOWER
     Route: 061
     Dates: start: 2024, end: 2024

REACTIONS (5)
  - Atrial fibrillation [Unknown]
  - Skin infection [Unknown]
  - Sweat gland disorder [Recovered/Resolved]
  - Skin swelling [Unknown]
  - Rash [Unknown]

NARRATIVE: CASE EVENT DATE: 20240101
